FAERS Safety Report 21581829 (Version 3)
Quarter: 2023Q2

REPORT INFORMATION
  Report Type: Report from Study
  Country: US (occurrence: US)
  Receive Date: 20221111
  Receipt Date: 20230612
  Transmission Date: 20230722
  Serious: Yes (Hospitalization)
  Sender: FDA-Public Use
  Company Number: US-ARGENX-2022-ARGX-US002372

PATIENT
  Age: 70 Year
  Sex: Female

DRUGS (1)
  1. VYVGART [Suspect]
     Active Substance: EFGARTIGIMOD ALFA-FCAB
     Indication: Myasthenia gravis
     Dosage: UNK
     Route: 042
     Dates: start: 20220825

REACTIONS (3)
  - Spinal stenosis [Recovered/Resolved]
  - Nail bed infection [Unknown]
  - Nail infection [Unknown]

NARRATIVE: CASE EVENT DATE: 20221101
